FAERS Safety Report 10067662 (Version 3)
Quarter: 2014Q3

REPORT INFORMATION
  Report Type: Spontaneous
  Country: US (occurrence: None)
  Receive Date: 20140407
  Receipt Date: 20140811
  Transmission Date: 20150326
  Serious: Yes (Disabling)
  Sender: FDA-Public Use
  Company Number: 2014-US-003877

PATIENT
  Age: 35 Year
  Sex: Female

DRUGS (1)
  1. XYREM [Suspect]
     Active Substance: SODIUM OXYBATE
     Indication: CHRONIC FATIGUE SYNDROME
     Route: 048
     Dates: start: 200711

REACTIONS (10)
  - Nausea [None]
  - Hyperhidrosis [None]
  - Gastrointestinal sounds abnormal [None]
  - Skin odour abnormal [None]
  - Disability [None]
  - Underdose [None]
  - Abdominal discomfort [None]
  - Off label use [None]
  - Retching [None]
  - Pain [None]
